FAERS Safety Report 8478545-7 (Version None)
Quarter: 2012Q2

REPORT INFORMATION
  Report Type: 
  Country: None (occurrence: None)
  Receive Date: 20120629
  Receipt Date: 20120620
  Transmission Date: 20120825
  Serious: Yes (Other)
  Sender: FDA-Public Use
  Company Number: CA-JNJFOC-20120611085

PATIENT
  Sex: Female
  Weight: 95.5 kg

DRUGS (2)
  1. REMICADE [Suspect]
     Indication: CROHN'S DISEASE
     Route: 042
     Dates: start: 20120620, end: 20120620
  2. REMICADE [Suspect]
     Route: 042
     Dates: start: 20111208

REACTIONS (9)
  - MUSCLE TWITCHING [None]
  - FLUSHING [None]
  - PRURITUS [None]
  - NAUSEA [None]
  - BACK PAIN [None]
  - MUSCLE SPASMS [None]
  - ABDOMINAL PAIN [None]
  - VOMITING [None]
  - INFUSION RELATED REACTION [None]
